FAERS Safety Report 4981217-4 (Version None)
Quarter: 2006Q1

REPORT INFORMATION
  Report Type: 
  Country: None (occurrence: None)
  Receive Date: 20060228
  Receipt Date: 20051017
  Transmission Date: 20060701
  Serious: No
  Sender: FDA-Public Use
  Company Number: 2005-0008834

PATIENT
  Age: 44 Year
  Sex: Male
  Weight: 83.9154 kg

DRUGS (4)
  1. TRUVADA [Suspect]
     Indication: HIV INFECTION
     Dates: start: 20050901
  2. VIREAD [Suspect]
     Indication: HIV INFECTION
     Dates: end: 20050101
  3. LEXIVA [Concomitant]
  4. EMTRIVA [Suspect]
     Indication: HIV INFECTION
     Dates: end: 20050101

REACTIONS (2)
  - BLOOD CREATININE INCREASED [None]
  - GLOMERULAR FILTRATION RATE DECREASED [None]
